FAERS Safety Report 5961830-8 (Version None)
Quarter: 2008Q4

REPORT INFORMATION
  Report Type: 
  Country: None (occurrence: None)
  Receive Date: 20081121
  Receipt Date: 20071219
  Transmission Date: 20090506
  Serious: No
  Sender: FDA-Public Use
  Company Number: US-BRISTOL-MYERS SQUIBB COMPANY-14019863

PATIENT
  Age: 84 Year
  Sex: Female

DRUGS (1)
  1. AVALIDE [Suspect]
     Dates: start: 20071218

REACTIONS (1)
  - PELVIC PAIN [None]
